FAERS Safety Report 7272297-4 (Version None)
Quarter: 2011Q1

REPORT INFORMATION
  Report Type: 
  Country: None (occurrence: None)
  Receive Date: 20110203
  Receipt Date: 20110124
  Transmission Date: 20110831
  Serious: Yes (Hospitalization)
  Sender: FDA-Public Use
  Company Number: PHHO2011US00997

PATIENT
  Sex: Female
  Weight: 84 kg

DRUGS (7)
  1. CARVEDILOL [Concomitant]
     Indication: HYPERTENSION
  2. COREG [Concomitant]
     Indication: HYPERTENSION
     Dosage: UNK
  3. ASPIRIN [Concomitant]
     Indication: PROPHYLAXIS
  4. RAMIPRIL [Concomitant]
     Indication: HYPERTENSION
     Dosage: UNK
  5. EXELON [Suspect]
     Indication: DEMENTIA ALZHEIMER'S TYPE
     Dosage: 15CM^2
     Route: 058
     Dates: start: 20101201, end: 20110104
  6. VYTORIN [Concomitant]
     Indication: HYPERLIPIDAEMIA
     Dosage: UNK
  7. NAMENDA [Concomitant]
     Indication: DEMENTIA ALZHEIMER'S TYPE
     Dosage: UNK

REACTIONS (6)
  - MENTAL STATUS CHANGES [None]
  - HYPOPHAGIA [None]
  - AGITATION [None]
  - ASTHENIA [None]
  - DEHYDRATION [None]
  - SOMNOLENCE [None]
